FAERS Safety Report 20469561 (Version 1)
Quarter: 2022Q1

REPORT INFORMATION
  Report Type: Spontaneous
  Country: BE (occurrence: BE)
  Receive Date: 20220214
  Receipt Date: 20220214
  Transmission Date: 20220424
  Serious: Yes (Other)
  Sender: FDA-Public Use
  Company Number: BE-PFIZER INC-202200211948

PATIENT
  Age: 67 Year
  Sex: Female

DRUGS (2)
  1. XANAX [Suspect]
     Active Substance: ALPRAZOLAM
     Indication: Anxiety
     Dosage: MAXIMUM 1 MG PER DAY (0.25 + 0.25 AT BEDTIME AND WHEN I WAKE UP AT NIGHT I TAKE 0.5)
  2. XANAX [Suspect]
     Active Substance: ALPRAZOLAM
     Indication: Nervousness

REACTIONS (7)
  - Liver injury [Unknown]
  - Nausea [Unknown]
  - Liver disorder [Unknown]
  - Dyspepsia [Unknown]
  - Headache [Unknown]
  - Eating disorder [Unknown]
  - Increased appetite [Unknown]
